FAERS Safety Report 14069312 (Version 1)
Quarter: 2017Q4

REPORT INFORMATION
  Report Type: Report from Study
  Country: BR (occurrence: BR)
  Receive Date: 20171010
  Receipt Date: 20171010
  Transmission Date: 20180321
  Serious: Yes (Death, Hospitalization)
  Sender: FDA-Public Use
  Company Number: PHHY2017BR146242

PATIENT
  Age: 90 Year
  Sex: Female
  Weight: 45 kg

DRUGS (3)
  1. LOSARTAN AND HYDROCHLOROTHIAZIDE [Concomitant]
     Active Substance: HYDROCHLOROTHIAZIDE\LOSARTAN POTASSIUM
     Indication: HYPERTENSION
     Dosage: 1 DF, QD
     Route: 048
  2. VITANOL-A [Concomitant]
     Indication: ACTINIC KERATOSIS
     Dosage: 0.25 OF PRINCIPLE ACTIVE TWICE A WEEK
     Route: 061
  3. DUOTRAVATAN [BAC] [Suspect]
     Active Substance: TIMOLOL MALEATE\TRAVOPROST
     Indication: GLAUCOMA
     Dosage: 1 DROP IN EACH EYE PER DAY (2.5ML)
     Route: 031

REACTIONS (4)
  - Cardio-respiratory arrest [Fatal]
  - Fall [Unknown]
  - Pneumonia [Fatal]
  - Femur fracture [Unknown]

NARRATIVE: CASE EVENT DATE: 20170819
